FAERS Safety Report 7110120-9 (Version None)
Quarter: 2010Q4

REPORT INFORMATION
  Report Type: 
  Country: None (occurrence: None)
  Receive Date: 20101118
  Receipt Date: 20101115
  Transmission Date: 20110411
  Serious: Yes (Death)
  Sender: FDA-Public Use
  Company Number: PHHY2010JP77701

PATIENT
  Sex: Female
  Weight: 40 kg

DRUGS (2)
  1. DIOVAN [Suspect]
     Dosage: 80 MG, ONCE DAILY
     Route: 048
     Dates: start: 20090709, end: 20100108
  2. INDERAL LA [Concomitant]
     Indication: HYPERTENSION
     Dosage: 60 MG, UNK
     Route: 048
     Dates: start: 20091118, end: 20100108

REACTIONS (1)
  - MARASMUS [None]
